FAERS Safety Report 12222779 (Version 1)
Quarter: 2016Q1

REPORT INFORMATION
  Report Type: Report from Study
  Country: FR (occurrence: FR)
  Receive Date: 20160330
  Receipt Date: 20160330
  Transmission Date: 20160526
  Serious: Yes (Hospitalization)
  Sender: FDA-Public Use
  Company Number: PHHY2016FR039294

PATIENT
  Age: 59 Year
  Sex: Female
  Weight: 72 kg

DRUGS (2)
  1. FOLFIRINOX [Concomitant]
     Active Substance: FLUOROURACIL\IRINOTECAN\LEUCOVORIN\OXALIPLATIN
     Indication: PANCREATIC CARCINOMA METASTATIC
     Route: 065
  2. ZARZIO [Suspect]
     Active Substance: FILGRASTIM
     Indication: NEUTROPENIA
     Route: 058
     Dates: start: 20160218, end: 20160222

REACTIONS (10)
  - Nausea [Recovered/Resolved]
  - Bone pain [Recovered/Resolved]
  - Abdominal pain upper [Unknown]
  - Dyspnoea [Recovered/Resolved]
  - Flatulence [Unknown]
  - Headache [Recovered/Resolved]
  - Vomiting [Unknown]
  - Gastrooesophageal reflux disease [Unknown]
  - Diarrhoea [Unknown]
  - Asthenia [Unknown]

NARRATIVE: CASE EVENT DATE: 20160219
